FAERS Safety Report 15888421 (Version 4)
Quarter: 2019Q2

REPORT INFORMATION
  Report Type: Spontaneous
  Country: JP (occurrence: JP)
  Receive Date: 20190130
  Receipt Date: 20190416
  Transmission Date: 20190711
  Serious: Yes (Other)
  Sender: FDA-Public Use
  Company Number: JP-ROCHE-2255097

PATIENT
  Age: 73 Year
  Sex: Female

DRUGS (8)
  1. XOFLUZA [Suspect]
     Active Substance: BALOXAVIR MARBOXIL
     Indication: INFLUENZA
     Route: 048
     Dates: start: 20190122, end: 20190122
  2. LOSARTAN K [Concomitant]
     Active Substance: LOSARTAN POTASSIUM
     Indication: HYPERTENSION
     Route: 048
     Dates: start: 20150313
  3. MUCOSOLVAN [Concomitant]
     Active Substance: AMBROXOL HYDROCHLORIDE
     Indication: BRONCHITIS
     Route: 065
     Dates: start: 20190119
  4. SPRYCEL [Concomitant]
     Active Substance: DASATINIB
     Indication: CHRONIC MYELOID LEUKAEMIA
     Route: 065
     Dates: start: 2017
  5. ASTOMIN (DIMEMORFAN PHOSPHATE) [Concomitant]
     Active Substance: DIMEMORFAN
     Indication: BRONCHITIS
     Route: 048
     Dates: start: 20190119
  6. ECABET SODIUM [Concomitant]
     Active Substance: ECABET SODIUM
     Indication: GASTRODUODENAL ULCER
     Route: 048
     Dates: start: 20110309
  7. CLARITH [Concomitant]
     Active Substance: CLARITHROMYCIN
     Indication: BRONCHITIS
     Route: 065
     Dates: start: 20190119
  8. INDOMETACIN [Concomitant]
     Active Substance: INDOMETHACIN
     Indication: INFLUENZA
     Route: 065
     Dates: start: 20190122

REACTIONS (1)
  - Mouth haemorrhage [Recovering/Resolving]

NARRATIVE: CASE EVENT DATE: 20190122
